FAERS Safety Report 10550771 (Version 1)
Quarter: 2014Q4

REPORT INFORMATION
  Report Type: Spontaneous
  Country: GB (occurrence: None)
  Receive Date: 20141027
  Receipt Date: 20141027
  Transmission Date: 20150529
  Serious: Yes (Other)
  Sender: FDA-Public Use
  Company Number: 20142179

PATIENT
  Sex: Female

DRUGS (2)
  1. ENBREL [Concomitant]
     Active Substance: ETANERCEPT
  2. METOJECT (METHOTREXATE) [Suspect]
     Active Substance: METHOTREXATE SODIUM

REACTIONS (2)
  - Vomiting [None]
  - Circulatory collapse [None]
